FAERS Safety Report 6142965-6 (Version None)
Quarter: 2009Q2

REPORT INFORMATION
  Report Type: 
  Country: None (occurrence: None)
  Receive Date: 20090403
  Receipt Date: 20090323
  Transmission Date: 20091009
  Serious: Yes (Hospitalization)
  Sender: FDA-Public Use
  Company Number: FR-NOVOPROD-285529

PATIENT
  Age: 82 Year
  Sex: Female

DRUGS (6)
  1. LEVEMIR [Suspect]
     Indication: TYPE 2 DIABETES MELLITUS
     Dosage: 10 IU, QD
     Route: 065
     Dates: start: 20090126, end: 20090303
  2. ATHYMIL [Suspect]
     Indication: DRUG USE FOR UNKNOWN INDICATION
     Dosage: 20 MG, QD
  3. ATHYMIL [Suspect]
     Dosage: 40 MG, QD
     Dates: start: 20090212, end: 20090303
  4. MECIR [Suspect]
     Indication: DRUG USE FOR UNKNOWN INDICATION
     Dosage: .4 MG, QD
     Route: 048
     Dates: end: 20090303
  5. DIFFU K [Suspect]
     Indication: DRUG USE FOR UNKNOWN INDICATION
     Dates: end: 20090303
  6. DEDROGYL [Concomitant]
     Indication: URINARY RETENTION
     Dates: start: 20090206

REACTIONS (1)
  - AGRANULOCYTOSIS [None]
